FAERS Safety Report 9847538 (Version 1)
Quarter: 2014Q1

REPORT INFORMATION
  Report Type: Spontaneous
  Country: AT (occurrence: AT)
  Receive Date: 20140128
  Receipt Date: 20140128
  Transmission Date: 20141002
  Serious: Yes (Other)
  Sender: FDA-Public Use
  Company Number: AT-ROCHE-1337567

PATIENT
  Age: 64 Year
  Sex: Male

DRUGS (10)
  1. MABTHERA [Suspect]
     Indication: CHRONIC LYMPHOCYTIC LEUKAEMIA
     Dosage: 3 CYCLES
     Route: 065
     Dates: start: 200601, end: 200603
  2. MABTHERA [Suspect]
     Dosage: 1 CYCLE
     Route: 065
     Dates: start: 200802, end: 200803
  3. MABTHERA [Suspect]
     Route: 065
     Dates: start: 200811
  4. DOXORUBICIN [Suspect]
     Indication: CHRONIC LYMPHOCYTIC LEUKAEMIA
     Route: 065
  5. BENDAMUSTINE [Suspect]
     Indication: CHRONIC LYMPHOCYTIC LEUKAEMIA
     Route: 065
     Dates: start: 200811
  6. CYCLOPHOSPHAMIDE [Suspect]
     Indication: CHRONIC LYMPHOCYTIC LEUKAEMIA
     Route: 065
  7. PREDNISOLONE [Suspect]
     Indication: CHRONIC LYMPHOCYTIC LEUKAEMIA
     Route: 065
  8. VINCRISTINE [Suspect]
     Indication: CHRONIC LYMPHOCYTIC LEUKAEMIA
     Route: 065
  9. CORTISON [Concomitant]
     Indication: CHRONIC LYMPHOCYTIC LEUKAEMIA
  10. ALLOPURINOL [Concomitant]
     Indication: CHRONIC LYMPHOCYTIC LEUKAEMIA
     Route: 065

REACTIONS (3)
  - Autoimmune haemolytic anaemia [Unknown]
  - Neutropenia [Unknown]
  - Leukopenia [Unknown]
